FAERS Safety Report 19888641 (Version 1)
Quarter: 2021Q3

REPORT INFORMATION
  Report Type: Spontaneous
  Country: US (occurrence: US)
  Receive Date: 20210927
  Receipt Date: 20210927
  Transmission Date: 20211014
  Serious: No
  Sender: FDA-Public Use
  Company Number: US-ABBVIE-21K-163-4070371-00

PATIENT
  Sex: Female
  Weight: 80.36 kg

DRUGS (3)
  1. SKYRIZI [Suspect]
     Active Substance: RISANKIZUMAB-RZAA
     Indication: PSORIASIS
     Route: 058
     Dates: start: 202012
  2. COVID?19 VACCINE [Concomitant]
     Route: 030
  3. COVID?19 VACCINE [Concomitant]
     Indication: COVID-19 IMMUNISATION
     Route: 030

REACTIONS (1)
  - Weight increased [Not Recovered/Not Resolved]
